FAERS Safety Report 6755927-2 (Version None)
Quarter: 2010Q2

REPORT INFORMATION
  Report Type: 
  Country: None (occurrence: None)
  Receive Date: 20100603
  Receipt Date: 20100603
  Transmission Date: 20101027
  Serious: Yes (Life-Threatening, Other)
  Sender: FDA-Public Use
  Company Number: None

PATIENT
  Age: 42 Year
  Sex: Female
  Weight: 99.3377 kg

DRUGS (2)
  1. LAMICTAL [Suspect]
     Indication: AFFECTIVE DISORDER
     Dosage: 25 MG 1 TIME 14 DAYS PO; 25 MG 2 TIMES 14 DAYS PO
     Route: 048
     Dates: start: 20100501, end: 20100530
  2. LAMICTAL [Suspect]
     Indication: DEPRESSION
     Dosage: 25 MG 1 TIME 14 DAYS PO; 25 MG 2 TIMES 14 DAYS PO
     Route: 048
     Dates: start: 20100501, end: 20100530

REACTIONS (2)
  - POLLAKIURIA [None]
  - THROAT TIGHTNESS [None]
